FAERS Safety Report 15426209 (Version 1)
Quarter: 2018Q3

REPORT INFORMATION
  Report Type: Spontaneous
  Country: BR (occurrence: BR)
  Receive Date: 20180925
  Receipt Date: 20180925
  Transmission Date: 20181010
  Serious: Yes (Other)
  Sender: FDA-Public Use
  Company Number: BR-ASTRAZENECA-2018SF20860

PATIENT
  Sex: Female

DRUGS (1)
  1. OLAPARIB. [Suspect]
     Active Substance: OLAPARIB
     Indication: OVARIAN CANCER
     Route: 048
     Dates: start: 2017

REACTIONS (4)
  - Blood disorder [Recovered/Resolved]
  - Off label use [Not Recovered/Not Resolved]
  - Malignant neoplasm progression [Unknown]
  - Product use in unapproved indication [Unknown]
